FAERS Safety Report 23505850 (Version 1)
Quarter: 2024Q1

REPORT INFORMATION
  Report Type: Spontaneous
  Country: JP (occurrence: JP)
  Receive Date: 20240209
  Receipt Date: 20240209
  Transmission Date: 20240410
  Serious: Yes (Other)
  Sender: FDA-Public Use
  Company Number: JP-STRIDES ARCOLAB LIMITED-2024SP001405

PATIENT
  Sex: Female

DRUGS (2)
  1. METHYLDOPA [Suspect]
     Active Substance: METHYLDOPA
     Indication: Product used for unknown indication
     Dosage: UNK
     Route: 064
  2. PREDNISOLONE [Suspect]
     Active Substance: PREDNISOLONE
     Indication: Product used for unknown indication
     Dosage: UNK (MOTHER DOSE: 1 MILLIGRAM/KILOGRAM)
     Route: 064

REACTIONS (2)
  - Low birth weight baby [Unknown]
  - Foetal exposure during pregnancy [Unknown]
